FAERS Safety Report 5347521-5 (Version None)
Quarter: 2007Q2

REPORT INFORMATION
  Report Type: 
  Country: None (occurrence: None)
  Receive Date: 20070606
  Receipt Date: 20070525
  Transmission Date: 20071010
  Serious: Yes (Death, Hospitalization)
  Sender: FDA-Public Use
  Company Number: FR-NOVOPROD-264004

PATIENT
  Age: 82 Year
  Sex: Female

DRUGS (13)
  1. NOVONORM [Suspect]
     Indication: DIABETES MELLITUS NON-INSULIN-DEPENDENT
     Dosage: 1 MG, QD
     Dates: end: 20070419
  2. SOLIAN [Suspect]
     Dosage: 50 MG, UNK
     Dates: end: 20070418
  3. DOLIPRANE [Suspect]
     Dosage: 1500 MG, UNK
     Dates: start: 20070416, end: 20070423
  4. NEORECORMON [Suspect]
     Dosage: 5000 IU, UNK
     Route: 058
     Dates: start: 20070305, end: 20070413
  5. ATHYMIL [Suspect]
     Dosage: 30 MG, QD
     Route: 048
     Dates: end: 20070419
  6. ZELITREX                           /01269701/ [Suspect]
     Dosage: 3 G, QD
     Dates: start: 20070416, end: 20070418
  7. TIMOPTIC [Concomitant]
     Dates: end: 20070419
  8. TRUSOPT [Concomitant]
     Dates: end: 20070419
  9. XALATAN [Concomitant]
     Dates: end: 20070419
  10. UMULINE NPH                        /00646002/ [Concomitant]
     Dates: end: 20070419
  11. SERESTA [Concomitant]
     Dates: end: 20070419
  12. FUNGIZONE [Concomitant]
     Dates: start: 20070418
  13. BICARBONATE [Concomitant]
     Dates: start: 20070418

REACTIONS (2)
  - RENAL FAILURE ACUTE [None]
  - THROMBOCYTOPENIA [None]
